FAERS Safety Report 14721738 (Version 1)
Quarter: 2018Q2

REPORT INFORMATION
  Report Type: Spontaneous
  Country: US (occurrence: US)
  Receive Date: 20180401
  Receipt Date: 20180401
  Transmission Date: 20180711
  Serious: No
  Sender: FDA-Public Use
  Company Number: None

PATIENT
  Age: 47 Year
  Sex: Female
  Weight: 112.5 kg

DRUGS (5)
  1. LIPITOR [Concomitant]
     Active Substance: ATORVASTATIN CALCIUM
  2. SYNRHROID [Concomitant]
  3. PENNSAID [Suspect]
     Active Substance: DICLOFENAC SODIUM
     Indication: EPICONDYLITIS
     Dosage: ?          QUANTITY:3.8 OUNCE(S);?
     Route: 061
     Dates: start: 20180329, end: 20180330
  4. FLONASE [Concomitant]
     Active Substance: FLUTICASONE PROPIONATE
  5. METFORMIN [Concomitant]
     Active Substance: METFORMIN HYDROCHLORIDE

REACTIONS (5)
  - Rash erythematous [None]
  - Product label issue [None]
  - Pruritus [None]
  - Feeling hot [None]
  - Reaction to excipient [None]

NARRATIVE: CASE EVENT DATE: 20180330
